FAERS Safety Report 7327379-5 (Version None)
Quarter: 2011Q1

REPORT INFORMATION
  Report Type: 
  Country: None (occurrence: None)
  Receive Date: 20110302
  Receipt Date: 20110204
  Transmission Date: 20110831
  Serious: No
  Sender: FDA-Public Use
  Company Number: US-B.I. PHARMACEUTICALS,INC./RIDGEFIELD-2011-BP-03553BP

PATIENT
  Age: 81 Year
  Sex: Female

DRUGS (4)
  1. PRADAXA [Suspect]
     Indication: ATRIAL FIBRILLATION
     Dosage: 300 MG
     Route: 048
     Dates: start: 20110128
  2. METOPROLOL TARTRATE [Concomitant]
  3. MULTAQ [Concomitant]
  4. AVALIDE [Concomitant]

REACTIONS (2)
  - ANORECTAL DISCOMFORT [None]
  - INSOMNIA [None]
